FAERS Safety Report 8775991 (Version 4)
Quarter: 2013Q1

REPORT INFORMATION
  Report Type: Report from Study
  Country: DE (occurrence: DE)
  Receive Date: 20120910
  Receipt Date: 20130314
  Transmission Date: 20140127
  Serious: Yes (Hospitalization, Other)
  Sender: FDA-Public Use
  Company Number: DE-VERTEX PHARMACEUTICAL INC.-2012-020366

PATIENT
  Age: 63 Year
  Sex: Female

DRUGS (6)
  1. VX-950 (TELAPREVIR) [Suspect]
     Indication: HEPATITIS C
     Dosage: 2250 MG, QD
     Route: 048
     Dates: start: 20120803, end: 20120815
  2. RIBAVIRIN [Suspect]
     Indication: PRODUCT USED FOR UNKNOWN INDICATION
     Dosage: 1000 MG, UNK
     Route: 048
     Dates: start: 20120803, end: 20120815
  3. RIBAVIRIN [Suspect]
     Indication: HEPATITIS C
  4. PEG-INTERFERON [Suspect]
     Indication: HEPATITIS C
     Route: 058
     Dates: start: 20120803, end: 20120815
  5. ENALAPRIL [Concomitant]
     Indication: HYPERTENSION
     Dosage: 40 MG, UNK
     Route: 048
  6. METOPROLOL [Concomitant]
     Indication: HYPERTENSION
     Dosage: 190 MG, UNK
     Route: 048

REACTIONS (1)
  - Acute coronary syndrome [Recovered/Resolved]
